FAERS Safety Report 6252528-X (Version None)
Quarter: 2009Q2

REPORT INFORMATION
  Report Type: 
  Country: None (occurrence: None)
  Receive Date: 20090629
  Receipt Date: 20090629
  Transmission Date: 20091009
  Serious: No
  Sender: FDA-Public Use
  Company Number: None

PATIENT
  Sex: Male
  Weight: 73.4827 kg

DRUGS (2)
  1. ZICAM - NITE [Suspect]
     Indication: HYPERSENSITIVITY
     Dates: start: 20050101
  2. ZICAM - PLUS D [Suspect]
     Indication: COUGH
     Dates: start: 20060101

REACTIONS (1)
  - HYPERSENSITIVITY [None]
